FAERS Safety Report 10370957 (Version 3)
Quarter: 2016Q3

REPORT INFORMATION
  Report Type: Spontaneous
  Country: IE (occurrence: IE)
  Receive Date: 20140808
  Receipt Date: 20160927
  Transmission Date: 20161109
  Serious: Yes (Other)
  Sender: FDA-Public Use
  Company Number: IE-PFIZER INC-2014217502

PATIENT
  Age: 37 Year
  Sex: Female

DRUGS (5)
  1. MOVICOL [Concomitant]
     Active Substance: POLYETHYLENE GLYCOL 3350\POTASSIUM CHLORIDE\SODIUM BICARBONATE\SODIUM CHLORIDE
  2. XALKORI [Suspect]
     Active Substance: CRIZOTINIB
     Indication: NON-SMALL CELL LUNG CANCER STAGE IV
     Dosage: 250 MG, 2X/DAY
     Dates: start: 20130301
  3. SENOKOT [Concomitant]
     Active Substance: SENNOSIDES
  4. ZOMETA [Concomitant]
     Active Substance: ZOLEDRONIC ACID
  5. LYRICA [Concomitant]
     Active Substance: PREGABALIN

REACTIONS (3)
  - Non-small cell lung cancer stage IV [Unknown]
  - Disease progression [Unknown]
  - Anaemia [Unknown]

NARRATIVE: CASE EVENT DATE: 201304
